FAERS Safety Report 12552968 (Version 3)
Quarter: 2016Q3

REPORT INFORMATION
  Report Type: Spontaneous
  Country: NO (occurrence: NO)
  Receive Date: 20160713
  Receipt Date: 20160822
  Transmission Date: 20161109
  Serious: Yes (Life-Threatening, Other)
  Sender: FDA-Public Use
  Company Number: NO-GE HEALTHCARE MEDICAL DIAGNOSTICS-OMPQ-PR-1607S-1104

PATIENT
  Age: 47 Year
  Sex: Female

DRUGS (2)
  1. OMNIPAQUE [Suspect]
     Active Substance: IOHEXOL
     Indication: DIAGNOSTIC PROCEDURE
  2. OMNIPAQUE [Suspect]
     Active Substance: IOHEXOL
     Indication: ABDOMINAL PAIN
     Route: 042
     Dates: start: 20160701, end: 20160701

REACTIONS (8)
  - Anaphylactoid reaction [Recovered/Resolved]
  - Dyspnoea [Unknown]
  - Upper airway obstruction [Recovered/Resolved]
  - Sneezing [Recovered/Resolved]
  - Chest discomfort [Unknown]
  - Angioedema [Recovered/Resolved]
  - Rash generalised [Unknown]
  - Pruritus [Recovered/Resolved]

NARRATIVE: CASE EVENT DATE: 20160701
